FAERS Safety Report 14565306 (Version 5)
Quarter: 2019Q4

REPORT INFORMATION
  Report Type: Report from Study
  Country: BE (occurrence: BE)
  Receive Date: 20180223
  Receipt Date: 20191017
  Transmission Date: 20200122
  Serious: Yes (Death, Hospitalization)
  Sender: FDA-Public Use
  Company Number: BE-ROCHE-2076125

PATIENT
  Age: 72 Year
  Sex: Female
  Weight: 85 kg

DRUGS (20)
  1. PERINDOPRIL [Concomitant]
     Active Substance: PERINDOPRIL
     Indication: HYPERTENSION
     Route: 048
  2. SODIUM BICARBONATE. [Concomitant]
     Active Substance: SODIUM BICARBONATE
     Indication: GENERAL PHYSICAL HEALTH DETERIORATION
     Route: 065
     Dates: start: 20180216
  3. DIPRIVAN [Concomitant]
     Active Substance: PROPOFOL
     Indication: SEDATION
     Route: 065
     Dates: start: 20180216
  4. VITAMIN C [Concomitant]
     Active Substance: ASCORBIC ACID
     Indication: GENERAL PHYSICAL HEALTH DETERIORATION
     Route: 065
     Dates: start: 20180216
  5. PRAVASTATINE TEVA [Concomitant]
     Active Substance: PRAVASTATIN SODIUM
     Indication: HYPERTENSION
     Route: 048
  6. TRAZOLAN [Concomitant]
     Active Substance: TRAZODONE HYDROCHLORIDE
     Indication: INSOMNIA
     Route: 065
     Dates: start: 20180215, end: 20180215
  7. MAGNESIUM SULFATE. [Concomitant]
     Active Substance: MAGNESIUM SULFATE
     Indication: GENERAL PHYSICAL HEALTH DETERIORATION
     Route: 065
     Dates: start: 20180216
  8. COBIMETINIB. [Suspect]
     Active Substance: COBIMETINIB
     Indication: MALIGNANT MELANOMA
     Dosage: MOST RECENT DOSE PRIOR TO EVENT ONSET ON 14/FEB/2018
     Route: 048
     Dates: start: 20180105
  9. EMCONCOR [Concomitant]
     Active Substance: BISOPROLOL FUMARATE
     Indication: HYPERTENSION
     Route: 048
     Dates: start: 20180105
  10. SOLU-MEDROL [Concomitant]
     Active Substance: METHYLPREDNISOLONE SODIUM SUCCINATE
     Dosage: GENERAL SUPPORT
     Route: 065
     Dates: start: 20180216
  11. VEMURAFENIB. [Suspect]
     Active Substance: VEMURAFENIB
     Indication: MALIGNANT MELANOMA
     Dosage: DOSE BLINDED?MOST RECENT DOSE PRIOR TO EVENT ONSET ON 14/FEB/2018 (6 DF)
     Route: 048
     Dates: start: 20180105
  12. NESTROLAN [Concomitant]
     Indication: PRODUCT USED FOR UNKNOWN INDICATION
     Route: 048
  13. PRAREDUCT [Concomitant]
     Active Substance: PRAVASTATIN SODIUM
     Dosage: PROPHYLAXIS CARDIOVASCULAR DISEASE
     Route: 065
     Dates: start: 20180215
  14. NORADRENALINE [NOREPINEPHRINE] [Concomitant]
     Active Substance: NOREPINEPHRINE
     Indication: GENERAL PHYSICAL HEALTH DETERIORATION
     Route: 065
     Dates: start: 20180216
  15. BLINDED ATEZOLIZUMAB [Suspect]
     Active Substance: ATEZOLIZUMAB
     Indication: MALIGNANT MELANOMA
     Dosage: MOST RECENT DOSE PRIOR TO EVENT ONSET ON 01/FEB/2018
     Route: 042
     Dates: start: 20180201
  16. AMLOR [Concomitant]
     Active Substance: AMLODIPINE BESYLATE
     Indication: HYPERTENSION
     Route: 048
  17. LITICAN [ALIZAPRIDE HYDROCHLORIDE] [Concomitant]
     Indication: NAUSEA
     Route: 065
     Dates: start: 20180215, end: 20180215
  18. PEGFILGRASTIM [Concomitant]
     Active Substance: PEGFILGRASTIM
     Indication: NEUTROPHIL COUNT DECREASED
     Route: 065
     Dates: start: 20180216, end: 20180216
  19. DAFALGAN [Concomitant]
     Active Substance: ACETAMINOPHEN
     Indication: PAIN
     Route: 065
     Dates: start: 20180215, end: 20180216
  20. SODIUM CHLORIDE. [Concomitant]
     Active Substance: SODIUM CHLORIDE
     Indication: ACUTE KIDNEY INJURY
     Route: 065
     Dates: start: 20180215

REACTIONS (2)
  - Pulmonary haemorrhage [Fatal]
  - Diarrhoea [Not Recovered/Not Resolved]

NARRATIVE: CASE EVENT DATE: 20180215
